FAERS Safety Report 5340424-1 (Version None)
Quarter: 2007Q2

REPORT INFORMATION
  Report Type: 
  Country: None (occurrence: None)
  Receive Date: 20070405
  Receipt Date: 20061212
  Transmission Date: 20071010
  Serious: No
  Sender: FDA-Public Use
  Company Number: US200612002018

PATIENT
  Age: 55 Year
  Sex: Male

DRUGS (3)
  1. CYMBALTA [Suspect]
     Indication: PAIN
     Dosage: 30 MG, DAILY (1/D), ORAL
     Route: 048
     Dates: start: 20060101
  2. VICODIN [Concomitant]
  3. MEMANTINE HCL [Concomitant]

REACTIONS (3)
  - AGITATION [None]
  - IRRITABILITY [None]
  - VERBAL ABUSE [None]
